FAERS Safety Report 13047119 (Version 1)
Quarter: 2016Q4

REPORT INFORMATION
  Report Type: Spontaneous
  Country: US (occurrence: US)
  Receive Date: 20161220
  Receipt Date: 20161220
  Transmission Date: 20170207
  Serious: No
  Sender: FDA-Public Use
  Company Number: US-ELI_LILLY_AND_COMPANY-US201607009540

PATIENT
  Sex: Female
  Weight: 64 kg

DRUGS (1)
  1. CYMBALTA [Suspect]
     Active Substance: DULOXETINE HYDROCHLORIDE
     Indication: PAIN
     Dosage: 60 MG, QD
     Route: 048
     Dates: start: 2004, end: 2013

REACTIONS (15)
  - Nausea [Unknown]
  - Paraesthesia [Unknown]
  - Anxiety [Unknown]
  - Headache [Unknown]
  - Agitation [Unknown]
  - Drug withdrawal syndrome [Unknown]
  - Nerve injury [Unknown]
  - Amnesia [Unknown]
  - Dizziness [Unknown]
  - Irritability [Unknown]
  - Depression [Not Recovered/Not Resolved]
  - Confusional state [Unknown]
  - Mood swings [Unknown]
  - Fatigue [Unknown]
  - Insomnia [Not Recovered/Not Resolved]
